FAERS Safety Report 8267119-9 (Version None)
Quarter: 2012Q2

REPORT INFORMATION
  Report Type: 
  Country: None (occurrence: None)
  Receive Date: 20120409
  Receipt Date: 20120326
  Transmission Date: 20120825
  Serious: Yes (Other)
  Sender: FDA-Public Use
  Company Number: US-JNJFOC-20120402945

PATIENT

DRUGS (4)
  1. CIPROFLOXACIN HCL [Suspect]
     Indication: INFECTION
     Route: 065
  2. CIPROFLOXACIN HCL [Suspect]
     Indication: URINARY TRACT INFECTION
     Route: 065
  3. AVELOX [Suspect]
     Indication: INFECTION
     Route: 065
  4. LEVAQUIN [Suspect]
     Indication: INFECTION
     Route: 065

REACTIONS (3)
  - PIRIFORMIS SYNDROME [None]
  - DISABILITY [None]
  - FIBROMYALGIA [None]
